FAERS Safety Report 23266593 (Version 2)
Quarter: 2024Q1

REPORT INFORMATION
  Report Type: Spontaneous
  Country: DE (occurrence: DE)
  Receive Date: 20231206
  Receipt Date: 20240307
  Transmission Date: 20240410
  Serious: Yes (Other)
  Sender: FDA-Public Use
  Company Number: DE-002147023-NVSC2023DE252092

PATIENT
  Age: 19 Year
  Sex: Female

DRUGS (2)
  1. ADAKVEO [Suspect]
     Active Substance: CRIZANLIZUMAB-TMCA
     Indication: Product used for unknown indication
     Dosage: UNK
     Route: 065
     Dates: start: 202211, end: 202308
  2. HYDROXYUREA [Suspect]
     Active Substance: HYDROXYUREA
     Indication: Product used for unknown indication
     Dosage: UNK
     Route: 065

REACTIONS (1)
  - Sickle cell anaemia with crisis [Not Recovered/Not Resolved]

NARRATIVE: CASE EVENT DATE: 20230101
